FAERS Safety Report 6521572-7 (Version None)
Quarter: 2009Q4

REPORT INFORMATION
  Report Type: 
  Country: None (occurrence: None)
  Receive Date: 20091214
  Receipt Date: 20090720
  Transmission Date: 20100525
  Serious: Yes (Other)
  Sender: FDA-Public Use
  Company Number: 645210

PATIENT
  Age: 50 Year
  Sex: Male

DRUGS (2)
  1. PEGASYS [Suspect]
     Indication: HEPATITIS C
     Dosage: 180 UG 1 PER WEEK
     Dates: start: 20090617
  2. COPEGUS [Suspect]
     Indication: HEPATITIS C
     Dosage: 800 MG DAILY
     Dates: start: 20090617

REACTIONS (3)
  - FATIGUE [None]
  - HEADACHE [None]
  - WEIGHT DECREASED [None]
